FAERS Safety Report 11310710 (Version 3)
Quarter: 2015Q3

REPORT INFORMATION
  Report Type: Report from Study
  Country: US (occurrence: US)
  Receive Date: 20150725
  Receipt Date: 20150918
  Transmission Date: 20151125
  Serious: Yes (Other)
  Sender: FDA-Public Use
  Company Number: PHEH2015US006971

PATIENT
  Age: 52 Year
  Sex: Male
  Weight: 81 kg

DRUGS (1)
  1. GILENYA [Suspect]
     Active Substance: FINGOLIMOD HYDROCHLORIDE
     Indication: MULTIPLE SCLEROSIS
     Dosage: 0.5 MG, QD
     Route: 048
     Dates: start: 20150226

REACTIONS (7)
  - Headache [Not Recovered/Not Resolved]
  - Weight increased [Recovering/Resolving]
  - Ankle fracture [Not Recovered/Not Resolved]
  - Thrombosis [Not Recovered/Not Resolved]
  - Fatigue [Not Recovered/Not Resolved]
  - Therapeutic response unexpected [Unknown]
  - Lower limb fracture [Not Recovered/Not Resolved]

NARRATIVE: CASE EVENT DATE: 20150910
